FAERS Safety Report 4601415-9 (Version None)
Quarter: 2005Q1

REPORT INFORMATION
  Report Type: 
  Country: None (occurrence: None)
  Receive Date: 20050308
  Receipt Date: 20050225
  Transmission Date: 20050727
  Serious: Yes (Hospitalization)
  Sender: FDA-Public Use
  Company Number: DE-SANOFI-SYNTHELABO-A04200500191

PATIENT

DRUGS (1)
  1. PLAVIX [Suspect]
     Indication: ANTIPLATELET THERAPY
     Route: 048

REACTIONS (3)
  - GASTRITIS [None]
  - HAEMATURIA [None]
  - URINARY RETENTION [None]
